FAERS Safety Report 5631714-3 (Version None)
Quarter: 2008Q1

REPORT INFORMATION
  Report Type: 
  Country: None (occurrence: None)
  Receive Date: 20080220
  Receipt Date: 20080208
  Transmission Date: 20080703
  Serious: Yes (Other)
  Sender: FDA-Public Use
  Company Number: HQWYE035027FEB06

PATIENT
  Sex: Female

DRUGS (6)
  1. PREMARIN [Suspect]
  2. MEDROXYPROGESTERONE [Suspect]
  3. ESTRADERM [Suspect]
  4. CYCRIN [Suspect]
  5. PROVERA [Suspect]
  6. PREMPRO [Suspect]

REACTIONS (1)
  - BREAST CANCER METASTATIC [None]
